FAERS Safety Report 5972443-6 (Version None)
Quarter: 2008Q4

REPORT INFORMATION
  Report Type: 
  Country: None (occurrence: None)
  Receive Date: 20081126
  Receipt Date: 20081112
  Transmission Date: 20090506
  Serious: No
  Sender: FDA-Public Use
  Company Number: 2008-172945-NL

PATIENT
  Age: 33 Year
  Sex: Female

DRUGS (7)
  1. MIRTAZAPINE [Suspect]
     Indication: DEPRESSION
     Dosage: 30 MG QD/15 MG QD/30 MG QD
     Dates: start: 20060825, end: 20071002
  2. MIRTAZAPINE [Suspect]
     Indication: SLEEP DISORDER
     Dosage: 30 MG QD/15 MG QD/30 MG QD
     Dates: start: 20060825, end: 20071002
  3. MIRTAZAPINE [Suspect]
     Indication: DEPRESSION
     Dosage: 30 MG QD/15 MG QD/30 MG QD
     Dates: start: 20071003, end: 20071012
  4. MIRTAZAPINE [Suspect]
     Indication: SLEEP DISORDER
     Dosage: 30 MG QD/15 MG QD/30 MG QD
     Dates: start: 20071003, end: 20071012
  5. MIRTAZAPINE [Suspect]
     Indication: DEPRESSION
     Dosage: 30 MG QD/15 MG QD/30 MG QD
     Dates: start: 20071013
  6. MIRTAZAPINE [Suspect]
     Indication: SLEEP DISORDER
     Dosage: 30 MG QD/15 MG QD/30 MG QD
     Dates: start: 20071013
  7. TEMAZEPAM [Concomitant]

REACTIONS (3)
  - ABORTION INDUCED [None]
  - DRUG EXPOSURE BEFORE PREGNANCY [None]
  - INSOMNIA [None]
